FAERS Safety Report 14718421 (Version 1)
Quarter: 2018Q2

REPORT INFORMATION
  Report Type: Spontaneous
  Country: US (occurrence: US)
  Receive Date: 20180404
  Receipt Date: 20180404
  Transmission Date: 20180711
  Serious: No
  Sender: FDA-Public Use
  Company Number: US-SA-2018SA079674

PATIENT
  Age: 58 Year
  Sex: Female

DRUGS (3)
  1. DUPIXENT [Suspect]
     Active Substance: DUPILUMAB
     Dosage: DOSE:600 MILLIGRAM(S)/MILLILITRE
     Route: 065
  2. DUPIXENT [Suspect]
     Active Substance: DUPILUMAB
     Dosage: DOSE:300 MILLIGRAM(S)/MILLILITRE
     Route: 065
  3. AMLODIPINE [Concomitant]
     Active Substance: AMLODIPINE BESYLATE
     Route: 065

REACTIONS (3)
  - Asthenia [Unknown]
  - Blepharospasm [Unknown]
  - Lethargy [Unknown]

NARRATIVE: CASE EVENT DATE: 2017
